FAERS Safety Report 11558366 (Version 1)
Quarter: 2015Q3

REPORT INFORMATION
  Report Type: Spontaneous
  Country: US (occurrence: US)
  Receive Date: 20150928
  Receipt Date: 20150928
  Transmission Date: 20151125
  Serious: No
  Sender: FDA-Public Use
  Company Number: US-PFIZER INC-2015309170

PATIENT
  Age: 52 Year
  Sex: Male

DRUGS (1)
  1. ADVIL [Suspect]
     Active Substance: IBUPROFEN
     Dosage: 200 MG, UNK
     Route: 048

REACTIONS (3)
  - Oropharyngeal discomfort [Recovering/Resolving]
  - Paraesthesia oral [Recovering/Resolving]
  - Intentional product use issue [Recovering/Resolving]
